FAERS Safety Report 9538306 (Version 1)
Quarter: 2013Q3

REPORT INFORMATION
  Report Type: Report from Study
  Country: DE (occurrence: DE)
  Receive Date: 20130920
  Receipt Date: 20130920
  Transmission Date: 20140515
  Serious: Yes (Other)
  Sender: FDA-Public Use
  Company Number: DE-CELGENEUS-062-21880-13092010

PATIENT
  Sex: 0

DRUGS (3)
  1. REVLIMID [Suspect]
     Indication: CHRONIC LYMPHOCYTIC LEUKAEMIA
     Route: 048
  2. BENDAMUSTINE [Suspect]
     Indication: CHRONIC LYMPHOCYTIC LEUKAEMIA
     Route: 065
  3. RITUXIMAB [Suspect]
     Indication: CHRONIC LYMPHOCYTIC LEUKAEMIA
     Route: 065

REACTIONS (9)
  - Neoplasm [Unknown]
  - Blood disorder [Unknown]
  - Administration site reaction [Unknown]
  - Respiratory disorder [Unknown]
  - Angiopathy [Unknown]
  - Infection [Unknown]
  - Gastrointestinal disorder [Unknown]
  - Metabolic disorder [Unknown]
  - Poisoning [Unknown]
